FAERS Safety Report 20643914 (Version 1)
Quarter: 2022Q1

REPORT INFORMATION
  Report Type: Spontaneous
  Country: US (occurrence: None)
  Receive Date: 20220328
  Receipt Date: 20220328
  Transmission Date: 20220423
  Serious: No
  Sender: FDA-Public Use
  Company Number: US-FRESENIUS KABI-FK202203486

PATIENT
  Age: 24 Year
  Sex: Female
  Weight: 85 kg

DRUGS (7)
  1. ROPIVACAINE [Suspect]
     Active Substance: ROPIVACAINE
     Indication: Induced labour
     Dosage: 2 PERCENT (2MG/ML)?10 ML/HR?1600 DELIVERED 5 ML BOLUS
     Route: 008
     Dates: start: 20220316
  2. CAFFEINE/BUTALBITAL/PARACETAMOL [Concomitant]
     Indication: Product used for unknown indication
     Route: 065
  3. ONDANSETRON [Concomitant]
     Active Substance: ONDANSETRON
     Indication: Product used for unknown indication
     Route: 065
  4. SERTRALINE HYDROCHLORIDE [Concomitant]
     Active Substance: SERTRALINE HYDROCHLORIDE
     Indication: Product used for unknown indication
     Route: 065
  5. ASCORBIC ACID/PYRIDOXINE HYDROCHLORIDE/TOCOPHERYL ACETATE/FOLIC ACID/C [Concomitant]
     Indication: Product used for unknown indication
     Route: 065
  6. FERROUS SULFATE [Concomitant]
     Active Substance: FERROUS SULFATE
     Indication: Product used for unknown indication
     Route: 065
  7. UNSPECIFIED INGREDIENT [Concomitant]
     Active Substance: UNSPECIFIED INGREDIENT
     Indication: Product used for unknown indication
     Route: 065

REACTIONS (1)
  - Drug ineffective [Unknown]
